FAERS Safety Report 5889991-X (Version None)
Quarter: 2008Q3

REPORT INFORMATION
  Report Type: 
  Country: None (occurrence: None)
  Receive Date: 20080919
  Receipt Date: 20080915
  Transmission Date: 20090109
  Serious: Yes (Hospitalization)
  Sender: FDA-Public Use
  Company Number: FR-PFIZER INC-2008034441

PATIENT
  Age: 74 Year
  Sex: Female

DRUGS (1)
  1. XALATAN [Suspect]
     Dates: start: 20061101, end: 20070419

REACTIONS (3)
  - INFLAMMATION [None]
  - PAPILLITIS [None]
  - PAPILLOEDEMA [None]
